FAERS Safety Report 6733068-8 (Version None)
Quarter: 2010Q2

REPORT INFORMATION
  Report Type: 
  Country: None (occurrence: None)
  Receive Date: 20100518
  Receipt Date: 20100503
  Transmission Date: 20101027
  Serious: Yes (Hospitalization)
  Sender: FDA-Public Use
  Company Number: AUR-APL-2010-01237

PATIENT
  Age: 66 Year
  Sex: Female

DRUGS (7)
  1. SERTRALINE 50MG TABLETS [Suspect]
     Indication: MOOD ALTERED
     Dosage: 50 MG, ORAL
     Route: 048
  2. DULOXETINE 60 MG TABLETS [Suspect]
     Indication: AFFECTIVE DISORDER
     Dosage: 60 MG, 9 TAB ONCE ORAL
     Route: 048
  3. VENLAFAXINE HCL EXTENDED-RELEASE [Suspect]
     Indication: AFFECTIVE DISORDER
     Dosage: 75 MG, ONE DOSE NUMBER, ORAL
     Route: 048
  4. TRAZODONE ER 75 MG TABLETS [Suspect]
     Indication: AFFECTIVE DISORDER
     Dosage: 75 MG, 9 TABS ONCE, ORAL
     Route: 048
  5. CLONAZEPAM [Suspect]
     Indication: AFFECTIVE DISORDER
     Dosage: 0.125 MG, ONE DOSE NUMBER, ORAL
     Route: 048
  6. GABAPENTIN [Concomitant]
  7. ANTI-INFLAMMATORY DRUG (UNSPECIFIED) [Concomitant]

REACTIONS (17)
  - AGITATION [None]
  - AZOTAEMIA [None]
  - BLOOD CHLORIDE DECREASED [None]
  - BLOOD SODIUM DECREASED [None]
  - CONFUSIONAL STATE [None]
  - DISORIENTATION [None]
  - DYSARTHRIA [None]
  - FLAT AFFECT [None]
  - INTENTIONAL OVERDOSE [None]
  - LEUKOCYTOSIS [None]
  - MOOD ALTERED [None]
  - MULTIPLE DRUG OVERDOSE INTENTIONAL [None]
  - OXYGEN SATURATION DECREASED [None]
  - PCO2 INCREASED [None]
  - PO2 DECREASED [None]
  - SOMNOLENCE [None]
  - SUICIDE ATTEMPT [None]
